FAERS Safety Report 10008965 (Version 1)
Quarter: 2014Q1

REPORT INFORMATION
  Report Type: Spontaneous
  Country: US (occurrence: US)
  Receive Date: 20140313
  Receipt Date: 20140313
  Transmission Date: 20141002
  Serious: No
  Sender: FDA-Public Use
  Company Number: US-INCYTE CORPORATION-2012IN001197

PATIENT
  Age: 58 Year
  Sex: 0

DRUGS (7)
  1. JAKAFI [Suspect]
     Dosage: 20 MG, BID
     Route: 048
  2. AMARYL [Concomitant]
     Dosage: 2 MG, UNK
     Route: 048
  3. CARVEDILOL [Concomitant]
     Dosage: 25 MG, UNK
  4. LOVAZA [Concomitant]
     Dosage: 1 G, UNK
     Route: 048
  5. CRESTOR [Concomitant]
     Dosage: 5 MG, UNK
  6. PLAVIX [Concomitant]
     Dosage: 75 MG, UNK
     Route: 048
  7. FENOFIBRATE [Concomitant]
     Dosage: 35 MG, UNK
     Route: 048

REACTIONS (1)
  - Cough [Unknown]
